FAERS Safety Report 9361929 (Version 1)
Quarter: 2013Q2

REPORT INFORMATION
  Report Type: Spontaneous
  Country: US (occurrence: US)
  Receive Date: 20130621
  Receipt Date: 20130621
  Transmission Date: 20140414
  Serious: Yes (Hospitalization, Other)
  Sender: FDA-Public Use
  Company Number: US-ELI_LILLY_AND_COMPANY-US201306004917

PATIENT
  Sex: Female

DRUGS (17)
  1. HUMULIN REGULAR [Suspect]
     Indication: TYPE 2 DIABETES MELLITUS
     Dosage: UNK
     Dates: start: 2011
  2. HUMALOG LISPRO [Suspect]
     Indication: TYPE 2 DIABETES MELLITUS
     Dosage: UNK
     Dates: start: 2007, end: 2011
  3. LASIX                              /00032601/ [Concomitant]
     Dosage: 80 MG, BID
  4. ENALAPRIL [Concomitant]
     Dosage: 20 MG, BID
  5. PRILOSEC                           /00661201/ [Concomitant]
     Dosage: 40 MG, QD
  6. PRAVACHOL [Concomitant]
     Dosage: 40 MG, EACH EVENING
  7. ATENOLOL [Concomitant]
     Dosage: 50 MG, QD
  8. SYNTHROID [Concomitant]
     Dosage: 1575 UG, WEEKLY (1/W)
  9. CALCITRIOL [Concomitant]
     Dosage: 0.2 UG, 2/W
  10. METOLAZONE [Concomitant]
     Dosage: 2.5 MG, 2/W
  11. XANAX [Concomitant]
     Dosage: 0.5 MG, TID PRN
  12. QUININE [Concomitant]
     Dosage: 324 MG, EACH EVENING
  13. ALLOPURINOL [Concomitant]
     Dosage: 200 MG, QD
  14. ZOLOFT [Concomitant]
     Dosage: 50 MG, QD
  15. TROSPIUM [Concomitant]
     Dosage: 20 MG, QD
  16. ALBUTEROL SULFATE [Concomitant]
     Dosage: UNK, PRN
  17. ASPIRIN [Concomitant]
     Dosage: 325 MG, QD

REACTIONS (2)
  - Coronary artery occlusion [Unknown]
  - Nephropathy [Not Recovered/Not Resolved]
